FAERS Safety Report 5153662-8 (Version None)
Quarter: 2006Q4

REPORT INFORMATION
  Report Type: 
  Country: None (occurrence: None)
  Receive Date: 20061114
  Receipt Date: 20061026
  Transmission Date: 20070319
  Serious: Yes (Other)
  Sender: FDA-Public Use
  Company Number: 229722

PATIENT
  Age: 57 Year
  Sex: Female
  Weight: 69 kg

DRUGS (1)
  1. HERCEPTIN [Suspect]
     Indication: BREAST CANCER
     Dosage: 6 MG/KG, INTRAVENOUS
     Route: 042

REACTIONS (11)
  - ACUTE MYOCARDIAL INFARCTION [None]
  - ANAEMIA [None]
  - BLOOD CHOLESTEROL INCREASED [None]
  - BRADYCARDIA [None]
  - CORONARY ARTERY OCCLUSION [None]
  - CORONARY ARTERY STENOSIS [None]
  - PROTEIN TOTAL DECREASED [None]
  - SUPRAVENTRICULAR EXTRASYSTOLES [None]
  - THYROID ADENOMA [None]
  - THYROIDITIS [None]
  - TRI-IODOTHYRONINE DECREASED [None]
